FAERS Safety Report 4761204-1 (Version None)
Quarter: 2005Q3

REPORT INFORMATION
  Report Type: 
  Country: None (occurrence: None)
  Receive Date: 20050901
  Receipt Date: 20050901
  Transmission Date: 20060218
  Serious: No
  Sender: FDA-Public Use
  Company Number: None

PATIENT

DRUGS (4)
  1. OXALIPLATIN 195 MG IVPB [Suspect]
     Indication: COLON CANCER METASTATIC
     Dosage: Q 2 WEEKS SINCE 8/2/05
     Dates: start: 20050802
  2. AVASTIN [Concomitant]
  3. 5-FU [Concomitant]
  4. LEUCOVORIN [Concomitant]

REACTIONS (2)
  - PARAESTHESIA [None]
  - PERIPHERAL SENSORY NEUROPATHY [None]
